FAERS Safety Report 5831738-7 (Version None)
Quarter: 2008Q3

REPORT INFORMATION
  Report Type: 
  Country: None (occurrence: None)
  Receive Date: 20080803
  Receipt Date: 20080723
  Transmission Date: 20090109
  Serious: Yes (Hospitalization)
  Sender: FDA-Public Use
  Company Number: PHHY2008DE15597

PATIENT
  Sex: Female

DRUGS (3)
  1. FAMVIR [Suspect]
     Indication: HERPES ZOSTER
     Dosage: 1 DF, BID
     Route: 048
     Dates: start: 20080414, end: 20080415
  2. LEVOTHYROXINE SODIUM [Concomitant]
     Indication: POST PROCEDURAL COMPLICATION
     Dosage: 1 DF, QD
     Route: 048
  3. TRAMAL [Concomitant]
     Indication: HERPES ZOSTER
     Dosage: 0.5 DF ONCE SINGLE
     Route: 048
     Dates: start: 20080414, end: 20080414

REACTIONS (9)
  - ANAPHYLACTIC REACTION [None]
  - BLOOD CALCIUM DECREASED [None]
  - BLOOD PRESSURE DECREASED [None]
  - BLOOD THYROID STIMULATING HORMONE DECREASED [None]
  - CARDIAC MURMUR [None]
  - DIZZINESS [None]
  - HYPERHIDROSIS [None]
  - NAUSEA [None]
  - VOMITING [None]
